FAERS Safety Report 6043645-8 (Version None)
Quarter: 2009Q1

REPORT INFORMATION
  Report Type: 
  Country: None (occurrence: None)
  Receive Date: 20090115
  Receipt Date: 20090105
  Transmission Date: 20090719
  Serious: Yes (Other)
  Sender: FDA-Public Use
  Company Number: 1000000799

PATIENT
  Age: 22 Year
  Sex: Female

DRUGS (1)
  1. CELEXA [Suspect]
     Dates: start: 20071001

REACTIONS (5)
  - DEFAECATION URGENCY [None]
  - DIARRHOEA [None]
  - FAECAL INCONTINENCE [None]
  - FREQUENT BOWEL MOVEMENTS [None]
  - RECTAL DISCHARGE [None]
